FAERS Safety Report 12446007 (Version 1)
Quarter: 2016Q2

REPORT INFORMATION
  Report Type: Spontaneous
  Country: US (occurrence: US)
  Receive Date: 20160608
  Receipt Date: 20160608
  Transmission Date: 20160815
  Serious: No
  Sender: FDA-Public Use
  Company Number: US-JNJFOC-20160526118

PATIENT
  Sex: Female

DRUGS (2)
  1. TYLENOL [Suspect]
     Active Substance: ACETAMINOPHEN
     Indication: SWELLING
     Route: 065
  2. TYLENOL [Suspect]
     Active Substance: ACETAMINOPHEN
     Route: 065

REACTIONS (7)
  - Vomiting [Unknown]
  - Product use issue [Unknown]
  - Rash erythematous [Unknown]
  - Pyrexia [Unknown]
  - Dermatitis contact [Unknown]
  - Change of bowel habit [Unknown]
  - Off label use [Unknown]
